FAERS Safety Report 17683660 (Version 32)
Quarter: 2025Q3

REPORT INFORMATION
  Report Type: Report from Study
  Country: US (occurrence: US)
  Receive Date: 20200420
  Receipt Date: 20250919
  Transmission Date: 20251020
  Serious: Yes (Other)
  Sender: TAKEDA
  Company Number: US-SHIRE-US202013831

PATIENT
  Age: 71 Year
  Sex: Female
  Weight: 126 kg

DRUGS (32)
  1. HUMAN IMMUNOGLOBULIN G [Suspect]
     Active Substance: HUMAN IMMUNOGLOBULIN G
     Indication: Congenital hypogammaglobulinaemia
     Dosage: 15 GRAM, 1/WEEK
  2. HUMAN IMMUNOGLOBULIN G [Suspect]
     Active Substance: HUMAN IMMUNOGLOBULIN G
     Dosage: 18 GRAM, 1/WEEK
  3. ACETAMINOPHEN [Concomitant]
     Active Substance: ACETAMINOPHEN
     Indication: Product used for unknown indication
  4. SINGULAIR [Concomitant]
     Active Substance: MONTELUKAST SODIUM
     Indication: Product used for unknown indication
  5. PRAVASTATIN SODIUM [Concomitant]
     Active Substance: PRAVASTATIN SODIUM
  6. VITAMIN C [Concomitant]
     Active Substance: ASCORBIC ACID
  7. ELIQUIS [Concomitant]
     Active Substance: APIXABAN
  8. MELATONIN [Concomitant]
     Active Substance: MELATONIN
     Indication: Product used for unknown indication
  9. METOPROLOL SUCCINATE [Concomitant]
     Active Substance: METOPROLOL SUCCINATE
  10. ZETIA [Concomitant]
     Active Substance: EZETIMIBE
  11. LISINOPRIL [Concomitant]
     Active Substance: LISINOPRIL
     Indication: Product used for unknown indication
  12. ZINC [Concomitant]
     Active Substance: ZINC
     Indication: Product used for unknown indication
  13. DIPHENHYDRAMINE HYDROCHLORIDE [Concomitant]
     Active Substance: DIPHENHYDRAMINE HYDROCHLORIDE
  14. Digestive Advantage [Concomitant]
  15. Lmx [Concomitant]
     Indication: Product used for unknown indication
  16. VITAMIN B [Concomitant]
     Active Substance: VITAMIN B
  17. VITAMIN D3 [Concomitant]
     Active Substance: CHOLECALCIFEROL
     Indication: Product used for unknown indication
  18. GLUCOSAMINE [Concomitant]
     Active Substance: GLUCOSAMINE
     Indication: Product used for unknown indication
  19. FORTIFY [Concomitant]
     Active Substance: MENTHOL
  20. EPINEPHRINE [Concomitant]
     Active Substance: EPINEPHRINE
     Indication: Product used for unknown indication
  21. TRAMADOL HCL [Concomitant]
     Active Substance: TRAMADOL HYDROCHLORIDE
     Indication: Product used for unknown indication
  22. ATORVASTATIN CALCIUM [Concomitant]
     Active Substance: ATORVASTATIN CALCIUM
     Indication: Product used for unknown indication
  23. ALENDRONATE SODIUM [Concomitant]
     Active Substance: ALENDRONATE SODIUM
     Indication: Product used for unknown indication
  24. METHOCARBAMOL [Concomitant]
     Active Substance: METHOCARBAMOL
  25. OMEGA 3 [Concomitant]
     Active Substance: CAPSAICIN
     Indication: Product used for unknown indication
  26. Diclofenac sod.co [Concomitant]
     Indication: Product used for unknown indication
  27. MECLIZINE HYDROCHLORIDE [Concomitant]
     Active Substance: MECLIZINE HYDROCHLORIDE
  28. FOLIC ACID\IRON [Concomitant]
     Active Substance: FOLIC ACID\IRON
  29. Coq [Concomitant]
  30. LACTOBACILLUS ACIDOPHILUS [Concomitant]
     Active Substance: LACTOBACILLUS ACIDOPHILUS
  31. Oyster shell calcium + d3 [Concomitant]
  32. GLUCOSAMINE SULFATE [Concomitant]
     Active Substance: GLUCOSAMINE SULFATE

REACTIONS (28)
  - Choking [Unknown]
  - Kidney infection [Unknown]
  - Diverticulitis [Unknown]
  - Respiratory tract infection [Unknown]
  - Pneumonia [Unknown]
  - Neoplasm malignant [Unknown]
  - Breast cancer [Unknown]
  - Gastritis [Unknown]
  - Weight decreased [Unknown]
  - Urinary tract infection [Unknown]
  - Nasopharyngitis [Unknown]
  - Seasonal allergy [Not Recovered/Not Resolved]
  - Bronchitis [Unknown]
  - Peripheral swelling [Unknown]
  - Product dose omission issue [Unknown]
  - Infusion site irritation [Unknown]
  - Food allergy [Unknown]
  - Infusion site discharge [Unknown]
  - Sinusitis [Unknown]
  - Rash [Unknown]
  - Asthma [Unknown]
  - Infusion site reaction [Unknown]
  - Influenza [Unknown]
  - Cough [Unknown]
  - Infusion site pruritus [Unknown]
  - Infusion site pain [Unknown]
  - Pruritus [Unknown]
  - Weight increased [Unknown]

NARRATIVE: CASE EVENT DATE: 20200913
